FAERS Safety Report 21075667 (Version 1)
Quarter: 2022Q3

REPORT INFORMATION
  Report Type: Spontaneous
  Country: US (occurrence: None)
  Receive Date: 20220712
  Receipt Date: 20220712
  Transmission Date: 20221027
  Serious: Yes (Other)
  Sender: FDA-Public Use
  Company Number: None

PATIENT
  Age: 61 Year
  Sex: Female
  Weight: 92.25 kg

DRUGS (9)
  1. LOSARTAN POTASSIUM [Suspect]
     Active Substance: LOSARTAN POTASSIUM
     Indication: Blood pressure abnormal
     Route: 048
  2. Metoprolol Succinate ER 24hr [Concomitant]
  3. 1x/day morning AmLODIPine Besylate 10MG TAB CIPL [Concomitant]
  4. Atorvastatin Calcium 10MG [Concomitant]
  5. Esomeprazole Magnesum [Concomitant]
  6. Magnesium Glycinate 400mg [Concomitant]
  7. Vitamin B2 [Concomitant]
  8. RIBOFLAVIN [Concomitant]
     Active Substance: RIBOFLAVIN
  9. Aceteminophin [Concomitant]

REACTIONS (4)
  - Depression [None]
  - Condition aggravated [None]
  - Suicidal ideation [None]
  - Feeling of despair [None]

NARRATIVE: CASE EVENT DATE: 20220701
